FAERS Safety Report 6258027-3 (Version None)
Quarter: 2009Q3

REPORT INFORMATION
  Report Type: 
  Country: None (occurrence: None)
  Receive Date: 20090707
  Receipt Date: 20090629
  Transmission Date: 20100115
  Serious: Yes (Life-Threatening)
  Sender: FDA-Public Use
  Company Number: FR-PFIZER INC-2009233137

PATIENT
  Age: 77 Year

DRUGS (10)
  1. TAHOR [Suspect]
     Dosage: UNK
     Dates: start: 20090223, end: 20090313
  2. INIPOMP [Suspect]
     Dosage: UNK
     Route: 048
     Dates: start: 20090221, end: 20090313
  3. AMLOR [Concomitant]
     Dosage: 10 MG, 1X/DAY
     Route: 048
     Dates: start: 20090221
  4. EUPRESSYL [Concomitant]
     Dosage: UNK
     Route: 048
     Dates: start: 20090221
  5. CALCIPARINE ^DIFREX^ [Concomitant]
     Dosage: 5000 IU, 2X/DAY
     Route: 058
     Dates: start: 20090222, end: 20090325
  6. IRBESARTAN [Concomitant]
     Dosage: UNK
     Route: 048
     Dates: start: 20090225, end: 20090325
  7. FORLAX [Concomitant]
     Dosage: UNK
     Route: 048
     Dates: start: 20090306, end: 20090313
  8. DETENSIEL [Concomitant]
     Dosage: UNK
     Route: 048
     Dates: start: 20090301
  9. TARDYFERON [Concomitant]
     Dosage: UNK
     Route: 048
     Dates: start: 20090306
  10. CEFTRIAXONE [Concomitant]
     Dosage: UNK
     Route: 042
     Dates: start: 20090223, end: 20090302

REACTIONS (2)
  - GRANULOCYTE COUNT DECREASED [None]
  - NEUTROPENIA [None]
